FAERS Safety Report 4896683-2 (Version None)
Quarter: 2006Q1

REPORT INFORMATION
  Report Type: 
  Country: None (occurrence: None)
  Receive Date: 20060131
  Receipt Date: 20060118
  Transmission Date: 20060701
  Serious: Yes (Hospitalization)
  Sender: FDA-Public Use
  Company Number: US-AMGEN-US165417

PATIENT
  Sex: Female
  Weight: 79.9 kg

DRUGS (10)
  1. DARBEPOETIN ALFA [Suspect]
     Indication: ANAEMIA OF MALIGNANT DISEASE
     Route: 058
     Dates: start: 20051221, end: 20051221
  2. ADRIAMYCIN PFS [Concomitant]
  3. CYTOXAN [Concomitant]
  4. TAXOTERE [Concomitant]
  5. INSULIN [Concomitant]
  6. ZETIA [Concomitant]
  7. NEULASTA [Concomitant]
     Indication: CHEMOTHERAPY
  8. DECADRON [Concomitant]
  9. ALOXI [Concomitant]
  10. INFLUENZA VACCINE [Concomitant]

REACTIONS (5)
  - BONE MARROW MYELOGRAM ABNORMAL [None]
  - HAEMOGLOBIN DECREASED [None]
  - METASTATIC NEOPLASM [None]
  - PAIN IN EXTREMITY [None]
  - WHITE BLOOD CELL COUNT INCREASED [None]
